FAERS Safety Report 25270285 (Version 1)
Quarter: 2025Q2

REPORT INFORMATION
  Report Type: Spontaneous
  Country: PT (occurrence: PT)
  Receive Date: 20250505
  Receipt Date: 20250505
  Transmission Date: 20250717
  Serious: Yes (Death, Other)
  Sender: NOVARTIS
  Company Number: PT-002147023-NVSC2023PT283486

PATIENT

DRUGS (92)
  1. LETROZOLE [Interacting]
     Active Substance: LETROZOLE
     Indication: Product used for unknown indication
     Route: 065
  2. MYCOPHENOLIC ACID [Interacting]
     Active Substance: MYCOPHENOLIC ACID
     Indication: Product used for unknown indication
     Route: 065
  3. ADALIMUMAB [Interacting]
     Active Substance: ADALIMUMAB
     Indication: Product used for unknown indication
     Route: 065
  4. EZETIMIBE [Interacting]
     Active Substance: EZETIMIBE
     Indication: Product used for unknown indication
     Route: 065
  5. ESCITALOPRAM [Interacting]
     Active Substance: ESCITALOPRAM OXALATE
     Indication: Product used for unknown indication
     Route: 065
  6. ESOMEPRAZOLE [Interacting]
     Active Substance: ESOMEPRAZOLE
     Indication: Product used for unknown indication
     Route: 065
  7. FLUVASTATIN [Interacting]
     Active Substance: FLUVASTATIN SODIUM
     Indication: Product used for unknown indication
     Route: 065
  8. ACETAMINOPHEN [Interacting]
     Active Substance: ACETAMINOPHEN
     Indication: Product used for unknown indication
     Route: 065
  9. VENLAFAXINE [Interacting]
     Active Substance: VENLAFAXINE HYDROCHLORIDE
     Indication: Product used for unknown indication
     Route: 065
  10. IMATINIB [Interacting]
     Active Substance: IMATINIB
     Indication: Product used for unknown indication
     Route: 065
  11. TELMISARTAN [Interacting]
     Active Substance: TELMISARTAN
     Indication: Product used for unknown indication
     Route: 065
  12. DONEPEZIL [Interacting]
     Active Substance: DONEPEZIL
     Indication: Product used for unknown indication
     Route: 065
  13. ZOLEDRONIC ACID [Interacting]
     Active Substance: ZOLEDRONIC ACID
     Indication: Product used for unknown indication
     Route: 065
  14. ALENDRONATE SODIUM [Interacting]
     Active Substance: ALENDRONATE SODIUM
     Indication: Product used for unknown indication
     Route: 065
  15. MIRTAZAPINE [Interacting]
     Active Substance: MIRTAZAPINE
     Indication: Product used for unknown indication
     Route: 065
  16. NILOTINIB [Interacting]
     Active Substance: NILOTINIB
     Indication: Product used for unknown indication
     Route: 065
  17. CELECOXIB [Interacting]
     Active Substance: CELECOXIB
     Indication: Product used for unknown indication
     Route: 065
  18. ETANERCEPT [Interacting]
     Active Substance: ETANERCEPT
     Indication: Product used for unknown indication
     Route: 065
  19. BISOPROLOL [Interacting]
     Active Substance: BISOPROLOL
     Indication: Product used for unknown indication
     Route: 065
  20. PREGABALIN [Interacting]
     Active Substance: PREGABALIN
     Indication: Product used for unknown indication
     Route: 065
  21. PREGABALIN [Interacting]
     Active Substance: PREGABALIN
     Route: 065
  22. HYDROCHLOROTHIAZIDE [Interacting]
     Active Substance: HYDROCHLOROTHIAZIDE
     Indication: Product used for unknown indication
     Route: 065
  23. ANASTROZOLE [Interacting]
     Active Substance: ANASTROZOLE
     Indication: Product used for unknown indication
     Route: 065
  24. BRINZOLAMIDE [Interacting]
     Active Substance: BRINZOLAMIDE
     Indication: Product used for unknown indication
     Route: 065
  25. BRINZOLAMIDE [Interacting]
     Active Substance: BRINZOLAMIDE
     Route: 065
  26. SERTRALINE HYDROCHLORIDE [Interacting]
     Active Substance: SERTRALINE HYDROCHLORIDE
     Indication: Product used for unknown indication
     Route: 065
  27. SERTRALINE [Interacting]
     Active Substance: SERTRALINE HYDROCHLORIDE
     Indication: Product used for unknown indication
     Route: 065
  28. PITAVASTATIN [Interacting]
     Active Substance: PITAVASTATIN
     Indication: Product used for unknown indication
     Route: 065
  29. ALISKIREN [Interacting]
     Active Substance: ALISKIREN
     Indication: Product used for unknown indication
     Route: 065
  30. PRAVASTATIN SODIUM [Interacting]
     Active Substance: PRAVASTATIN SODIUM
     Indication: Product used for unknown indication
     Route: 065
  31. POTASSIUM IODIDE [Interacting]
     Active Substance: POTASSIUM IODIDE
     Indication: Product used for unknown indication
     Route: 065
  32. PROPRANOLOL [Interacting]
     Active Substance: PROPRANOLOL HYDROCHLORIDE
     Indication: Product used for unknown indication
     Route: 065
  33. NITROGLYCERIN [Interacting]
     Active Substance: NITROGLYCERIN
     Indication: Product used for unknown indication
     Route: 065
  34. INDOMETHACIN [Interacting]
     Active Substance: INDOMETHACIN
     Indication: Product used for unknown indication
     Route: 065
  35. FLUOXETINE HYDROCHLORIDE [Interacting]
     Active Substance: FLUOXETINE HYDROCHLORIDE
     Indication: Product used for unknown indication
     Route: 065
  36. HYDROMORPHONE [Interacting]
     Active Substance: HYDROMORPHONE
     Indication: Product used for unknown indication
     Route: 065
  37. FENOFIBRATE [Interacting]
     Active Substance: FENOFIBRATE
     Indication: Product used for unknown indication
     Route: 065
  38. AGOMELATINE [Interacting]
     Active Substance: AGOMELATINE
     Indication: Product used for unknown indication
     Route: 065
  39. DILTIAZEM [Interacting]
     Active Substance: DILTIAZEM
     Indication: Product used for unknown indication
     Route: 065
  40. CODEINE [Interacting]
     Active Substance: CODEINE
     Indication: Product used for unknown indication
     Route: 065
  41. CODEINE [Interacting]
     Active Substance: CODEINE
     Indication: Product used for unknown indication
     Route: 065
  42. GINKGO [Interacting]
     Active Substance: GINKGO
     Indication: Product used for unknown indication
     Route: 065
  43. GINKGO [Interacting]
     Active Substance: GINKGO
     Route: 065
  44. ATORVASTATIN CALCIUM [Interacting]
     Active Substance: ATORVASTATIN CALCIUM
     Indication: Product used for unknown indication
     Route: 065
  45. CODEINE PHOSPHATE [Interacting]
     Active Substance: CODEINE PHOSPHATE
     Indication: Product used for unknown indication
     Route: 065
  46. TRAMADOL HYDROCHLORIDE [Interacting]
     Active Substance: TRAMADOL HYDROCHLORIDE
     Indication: Product used for unknown indication
     Route: 065
  47. HYDROMORPHONE HYDROCHLORIDE [Interacting]
     Active Substance: HYDROMORPHONE HYDROCHLORIDE
     Indication: Product used for unknown indication
     Route: 065
  48. DILTIAZEM HYDROCHLORIDE [Interacting]
     Active Substance: DILTIAZEM HYDROCHLORIDE
     Indication: Product used for unknown indication
     Route: 065
  49. PRAVASTATIN SODIUM [Interacting]
     Active Substance: PRAVASTATIN SODIUM
     Indication: Product used for unknown indication
     Route: 065
  50. ESCITALOPRAM OXALATE [Interacting]
     Active Substance: ESCITALOPRAM OXALATE
     Indication: Product used for unknown indication
     Route: 065
  51. ESCHERICHIA COLI [Interacting]
     Active Substance: ESCHERICHIA COLI
     Indication: Product used for unknown indication
     Route: 065
  52. CILAZAPRIL ANHYDROUS [Interacting]
     Active Substance: CILAZAPRIL ANHYDROUS
     Indication: Product used for unknown indication
     Route: 065
  53. GLUCOSAMINE [Interacting]
     Active Substance: GLUCOSAMINE
     Indication: Product used for unknown indication
     Route: 065
  54. MYCOPHENOLATE MOFETIL [Interacting]
     Active Substance: MYCOPHENOLATE MOFETIL
     Indication: Product used for unknown indication
     Route: 065
  55. VENLAFAXINE HYDROCHLORIDE [Interacting]
     Active Substance: VENLAFAXINE HYDROCHLORIDE
     Indication: Product used for unknown indication
     Route: 065
  56. PENTOXIFYLLINE [Interacting]
     Active Substance: PENTOXIFYLLINE
     Indication: Product used for unknown indication
     Route: 065
  57. BISOPROLOL FUMARATE [Interacting]
     Active Substance: BISOPROLOL FUMARATE
     Indication: Product used for unknown indication
     Route: 065
  58. EXEMESTANE [Interacting]
     Active Substance: EXEMESTANE
     Indication: Product used for unknown indication
     Route: 065
  59. HUMAN IMMUNOGLOBULIN G [Interacting]
     Active Substance: HUMAN IMMUNOGLOBULIN G
     Indication: Product used for unknown indication
     Route: 065
  60. INDOMETHACIN SODIUM [Interacting]
     Active Substance: INDOMETHACIN SODIUM
     Indication: Product used for unknown indication
     Route: 065
  61. CODEINE SULFATE [Interacting]
     Active Substance: CODEINE SULFATE
     Indication: Product used for unknown indication
     Route: 065
  62. SOFOSBUVIR [Interacting]
     Active Substance: SOFOSBUVIR
     Indication: Product used for unknown indication
     Route: 065
  63. VERAPAMIL [Interacting]
     Active Substance: VERAPAMIL HYDROCHLORIDE
     Indication: Product used for unknown indication
     Route: 065
  64. LEDIPASVIR [Interacting]
     Active Substance: LEDIPASVIR
     Indication: Product used for unknown indication
     Route: 065
  65. PENTAZOCINE [Interacting]
     Active Substance: PENTAZOCINE
     Indication: Product used for unknown indication
     Route: 065
  66. VORTIOXETINE [Interacting]
     Active Substance: VORTIOXETINE
     Indication: Product used for unknown indication
     Route: 065
  67. DUTASTERIDE [Interacting]
     Active Substance: DUTASTERIDE
     Indication: Product used for unknown indication
     Route: 065
  68. ASPIRIN [Interacting]
     Active Substance: ASPIRIN
     Indication: Product used for unknown indication
     Route: 065
  69. ASPIRIN [Interacting]
     Active Substance: ASPIRIN
     Route: 065
  70. BUPRENORPHINE [Interacting]
     Active Substance: BUPRENORPHINE
     Indication: Product used for unknown indication
     Dosage: 35 G, QH
     Route: 065
  71. BUPRENORPHINE [Interacting]
     Active Substance: BUPRENORPHINE
     Route: 065
  72. SIMVASTATIN [Interacting]
     Active Substance: SIMVASTATIN
     Indication: Product used for unknown indication
     Route: 065
  73. NAUZELIN [Interacting]
     Active Substance: DOMPERIDONE
     Indication: Product used for unknown indication
     Route: 065
  74. ACECLOFENAC [Interacting]
     Active Substance: ACECLOFENAC
     Indication: Product used for unknown indication
     Route: 065
  75. XYZAL [Interacting]
     Active Substance: LEVOCETIRIZINE DIHYDROCHLORIDE
     Indication: Product used for unknown indication
     Route: 065
  76. ESCHERICHIA COLI [Interacting]
     Active Substance: ESCHERICHIA COLI
     Indication: Product used for unknown indication
     Route: 065
  77. IBANDRONIC ACID [Interacting]
     Active Substance: IBANDRONIC ACID
     Indication: Product used for unknown indication
     Route: 065
  78. NORFLOXACIN [Interacting]
     Active Substance: NORFLOXACIN
     Indication: Product used for unknown indication
     Route: 065
  79. TAMSULOSIN HYDROCHLORIDE [Interacting]
     Active Substance: TAMSULOSIN HYDROCHLORIDE
     Indication: Product used for unknown indication
     Route: 065
  80. NIMESULIDE [Interacting]
     Active Substance: NIMESULIDE
     Indication: Product used for unknown indication
     Route: 065
  81. IODINE [Interacting]
     Active Substance: IODINE
     Indication: Product used for unknown indication
     Route: 065
  82. NITROGLYCERIN [Interacting]
     Active Substance: NITROGLYCERIN
     Indication: Product used for unknown indication
     Route: 065
  83. SODIUM PICOSULFATE [Interacting]
     Active Substance: SODIUM PICOSULFATE
     Indication: Product used for unknown indication
     Route: 065
  84. TOCILIZUMAB [Interacting]
     Active Substance: TOCILIZUMAB
     Indication: Product used for unknown indication
     Route: 065
  85. NITROGLYCERIN [Interacting]
     Active Substance: NITROGLYCERIN
     Indication: Product used for unknown indication
     Route: 065
  86. CHOLECALCIFEROL [Interacting]
     Active Substance: CHOLECALCIFEROL
     Indication: Product used for unknown indication
     Route: 065
  87. CHOLECALCIFEROL [Interacting]
     Active Substance: CHOLECALCIFEROL
     Route: 065
  88. DOCETAXEL [Interacting]
     Active Substance: DOCETAXEL
     Indication: Product used for unknown indication
     Route: 065
  89. VERAPAMIL HYDROCHLORIDE [Interacting]
     Active Substance: VERAPAMIL HYDROCHLORIDE
     Indication: Product used for unknown indication
     Route: 065
  90. ENOXAPARIN SODIUM [Interacting]
     Active Substance: ENOXAPARIN SODIUM
     Indication: Product used for unknown indication
     Route: 065
  91. ENOXAPARIN SODIUM [Interacting]
     Active Substance: ENOXAPARIN SODIUM
     Route: 065
  92. RIBAVIRIN [Interacting]
     Active Substance: RIBAVIRIN
     Indication: Product used for unknown indication
     Route: 065

REACTIONS (23)
  - Decreased appetite [Fatal]
  - Abdominal pain upper [Fatal]
  - Asthenia [Fatal]
  - Pruritus [Fatal]
  - Haemorrhagic stroke [Fatal]
  - Dizziness [Fatal]
  - Blindness [Fatal]
  - Fatigue [Fatal]
  - Cardio-respiratory arrest [Fatal]
  - Vision blurred [Fatal]
  - Haematemesis [Fatal]
  - Cough [Fatal]
  - Photophobia [Fatal]
  - Malaise [Fatal]
  - Tinnitus [Fatal]
  - Headache [Fatal]
  - Myalgia [Fatal]
  - Chills [Fatal]
  - Presyncope [Fatal]
  - Diplopia [Fatal]
  - Abdominal pain [Fatal]
  - Drug interaction [Fatal]
  - Eye pain [Unknown]
